FAERS Safety Report 7073546-8 (Version None)
Quarter: 2010Q4

REPORT INFORMATION
  Report Type: 
  Country: None (occurrence: None)
  Receive Date: 20101029
  Receipt Date: 20100708
  Transmission Date: 20110411
  Serious: No
  Sender: FDA-Public Use
  Company Number: A0869224A

PATIENT
  Sex: Male

DRUGS (2)
  1. ADVAIR DISKUS 100/50 [Suspect]
     Indication: ASTHMA
     Dosage: 1PUFF TWICE PER DAY
     Route: 055
  2. PREDNISONE [Suspect]
     Route: 065

REACTIONS (6)
  - ABNORMAL SENSATION IN EYE [None]
  - DYSPEPSIA [None]
  - DYSPNOEA [None]
  - EXPIRED DRUG ADMINISTERED [None]
  - PAIN [None]
  - PYREXIA [None]
